FAERS Safety Report 13064257 (Version 2)
Quarter: 2017Q1

REPORT INFORMATION
  Report Type: Spontaneous
  Country: US (occurrence: US)
  Receive Date: 20161227
  Receipt Date: 20170208
  Transmission Date: 20170428
  Serious: Yes (Other)
  Sender: FDA-Public Use
  Company Number: US-ASTRAZENECA-2016SF34744

PATIENT
  Sex: Female

DRUGS (10)
  1. VESICARE [Concomitant]
     Active Substance: SOLIFENACIN SUCCINATE
     Dosage: DAILY
     Route: 048
  2. BYDUREON [Suspect]
     Active Substance: EXENATIDE
     Indication: TYPE 2 DIABETES MELLITUS
     Route: 058
  3. MEDICATION [Concomitant]
     Active Substance: UNSPECIFIED INGREDIENT
     Indication: HYPERTENSION
  4. TRIANTHAMINE [Concomitant]
     Dosage: DAILY
     Route: 048
  5. METFORMIN [Concomitant]
     Active Substance: METFORMIN HYDROCHLORIDE
     Dosage: DAILY
     Route: 048
  6. ALLOPURINOL. [Concomitant]
     Active Substance: ALLOPURINOL
     Dosage: DAILY
     Route: 048
  7. METOPROLOL. [Suspect]
     Active Substance: METOPROLOL
     Dosage: DAILY
     Route: 048
  8. CRESTOR [Suspect]
     Active Substance: ROSUVASTATIN CALCIUM
     Indication: BLOOD CHOLESTEROL INCREASED
     Dosage: DAILY
     Route: 048
  9. GENERIC ACTOS [Concomitant]
     Dosage: DAILY
     Route: 048
  10. VALSARTAN. [Concomitant]
     Active Substance: VALSARTAN
     Dosage: DAILY
     Route: 048

REACTIONS (4)
  - Fall [Recovered/Resolved]
  - Circumstance or information capable of leading to medication error [Unknown]
  - Limb injury [Recovering/Resolving]
  - Device malfunction [Unknown]

NARRATIVE: CASE EVENT DATE: 20160105
